FAERS Safety Report 5693242-9 (Version None)
Quarter: 2008Q2

REPORT INFORMATION
  Report Type: 
  Country: None (occurrence: None)
  Receive Date: 20080403
  Receipt Date: 20080324
  Transmission Date: 20081010
  Serious: Yes (Disabling, Other)
  Sender: FDA-Public Use
  Company Number: PHEH2008US02364

PATIENT
  Sex: Female

DRUGS (3)
  1. RECLAST [Suspect]
     Dosage: UNK, ONCE YEARLY
  2. IMMUNOGLOBULINS [Concomitant]
     Indication: IMMUNODEFICIENCY
     Dosage: 150 MG, QMO
     Route: 042
     Dates: start: 20080120
  3. CALCIUM CARBONATE [Concomitant]
     Indication: OSTEOPOROSIS
     Dosage: 1500 MG, QD
     Route: 048

REACTIONS (2)
  - NEURALGIA [None]
  - PARAESTHESIA [None]
